FAERS Safety Report 4906421-2 (Version None)
Quarter: 2006Q1

REPORT INFORMATION
  Report Type: 
  Country: None (occurrence: None)
  Receive Date: 20060207
  Receipt Date: 20060118
  Transmission Date: 20060701
  Serious: Yes (Other)
  Sender: FDA-Public Use
  Company Number: EWC050945950

PATIENT
  Age: 71 Year
  Sex: Male

DRUGS (7)
  1. CIALIS [Suspect]
     Indication: ERECTILE DYSFUNCTION
     Dosage: 20 MG, 3/W, ORAL
     Route: 048
     Dates: start: 20030801, end: 20050801
  2. LANTUS [Concomitant]
  3. NOVONORM (REPAGLINIDE) [Concomitant]
  4. GLUCOPHAGE [Concomitant]
  5. PIOGLITAZONE HCL [Concomitant]
  6. ENALAPRIL MALEATE [Concomitant]
  7. ASPIRIN [Concomitant]

REACTIONS (1)
  - RETINAL ARTERY OCCLUSION [None]
